FAERS Safety Report 13291982 (Version 1)
Quarter: 2017Q1

REPORT INFORMATION
  Report Type: Spontaneous
  Country: US (occurrence: US)
  Receive Date: 20170303
  Receipt Date: 20170303
  Transmission Date: 20170428
  Serious: Yes (Hospitalization)
  Sender: FDA-Public Use
  Company Number: None

PATIENT
  Age: 61 Year
  Sex: Male
  Weight: 90.6 kg

DRUGS (3)
  1. ELOXATIN [Suspect]
     Active Substance: OXALIPLATIN
     Dates: end: 20150209
  2. LEUCOVORIN CALCIUM. [Suspect]
     Active Substance: LEUCOVORIN CALCIUM
     Dates: end: 20141224
  3. 5-FLUOROURACIL (5-FU) [Suspect]
     Active Substance: FLUOROURACIL
     Dates: end: 20141224

REACTIONS (7)
  - Gastrooesophageal reflux disease [None]
  - Impaired gastric emptying [None]
  - Dysphagia [None]
  - Duodenal stenosis [None]
  - Weight decreased [None]
  - Epigastric discomfort [None]
  - Pyloric stenosis [None]

NARRATIVE: CASE EVENT DATE: 20161123
